FAERS Safety Report 17634975 (Version 1)
Quarter: 2020Q2

REPORT INFORMATION
  Report Type: Spontaneous
  Country: US (occurrence: US)
  Receive Date: 20200406
  Receipt Date: 20200406
  Transmission Date: 20200713
  Serious: No
  Sender: FDA-Public Use
  Company Number: US-GALDERMA-US2020001835

PATIENT
  Age: 30 Year
  Sex: Male

DRUGS (12)
  1. PROACTIV MD ADAPALENE ACNE TREATMENT [Suspect]
     Active Substance: ADAPALENE
     Indication: ACNE
  2. PROACTIV MD DAILY OIL CONTROL SPF 30 [Suspect]
     Active Substance: AVOBENZONE\OCTISALATE\OCTOCRYLENE
     Indication: ACNE CYSTIC
     Route: 061
     Dates: start: 201910, end: 20191120
  3. PROACTIV GREEN TEA MOISTURIZER [Concomitant]
     Active Substance: COSMETICS
     Indication: ACNE CYSTIC
     Route: 061
     Dates: start: 201910, end: 20191120
  4. PROACTIV MD BALANCING TONER [Concomitant]
     Active Substance: COSMETICS
     Indication: ACNE CYSTIC
     Route: 061
     Dates: start: 201910, end: 20191120
  5. PROACTIV EYE BRIGHTENING SERUM [Concomitant]
     Active Substance: COSMETICS
     Indication: ACNE CYSTIC
     Route: 061
     Dates: start: 201910, end: 20191120
  6. PROACTIV GREEN TEA MOISTURIZER [Concomitant]
     Active Substance: COSMETICS
     Indication: ACNE
  7. PROACTIV MD BALANCING TONER [Concomitant]
     Active Substance: COSMETICS
     Indication: ACNE
  8. PROACTIV MD DEEP CLEANSING FACE WASH [Concomitant]
     Active Substance: COSMETICS
     Indication: ACNE CYSTIC
     Route: 061
     Dates: start: 201910, end: 20191120
  9. PROACTIV EYE BRIGHTENING SERUM [Concomitant]
     Active Substance: COSMETICS
     Indication: ACNE
  10. PROACTIV MD ADAPALENE ACNE TREATMENT [Suspect]
     Active Substance: ADAPALENE
     Indication: ACNE CYSTIC
     Dosage: 0.1%
     Route: 061
     Dates: start: 201910, end: 20191120
  11. PROACTIV MD DAILY OIL CONTROL SPF 30 [Suspect]
     Active Substance: AVOBENZONE\OCTISALATE\OCTOCRYLENE
     Indication: ACNE
  12. PROACTIV MD DEEP CLEANSING FACE WASH [Concomitant]
     Active Substance: COSMETICS
     Indication: ACNE

REACTIONS (6)
  - Pain of skin [Recovered/Resolved]
  - Erythema [Recovered/Resolved]
  - Dry skin [Recovered/Resolved]
  - Condition aggravated [Recovered/Resolved]
  - Dermatitis [Recovered/Resolved]
  - Acne [Recovered/Resolved]

NARRATIVE: CASE EVENT DATE: 20191101
